APPROVED DRUG PRODUCT: WARFARIN SODIUM
Active Ingredient: WARFARIN SODIUM
Strength: 7.5MG
Dosage Form/Route: TABLET;ORAL
Application: A040145 | Product #006
Applicant: BARR LABORATORIES INC
Approved: Mar 26, 1997 | RLD: No | RS: No | Type: DISCN